FAERS Safety Report 11890882 (Version 1)
Quarter: 2016Q1

REPORT INFORMATION
  Report Type: Spontaneous
  Country: US (occurrence: US)
  Receive Date: 20160106
  Receipt Date: 20160106
  Transmission Date: 20160526
  Serious: No
  Sender: FDA-Public Use
  Company Number: US-GLENMARK PHARMACEUTICALS INC, USA.-2014GMK012260

PATIENT
  Age: 68 Year
  Sex: Female

DRUGS (8)
  1. PROZAC [Concomitant]
     Active Substance: FLUOXETINE HYDROCHLORIDE
     Indication: DEPRESSION
  2. TRAZODONE [Concomitant]
     Active Substance: TRAZODONE HYDROCHLORIDE
     Indication: DEPRESSION
     Dosage: UNK
  3. CICLOPIROX. [Suspect]
     Active Substance: CICLOPIROX
     Indication: ROSACEA
  4. METANX [Concomitant]
     Active Substance: LEVOMEFOLATE CALCIUM\METHYLCOBALAMIN\PYRIDOXAL PHOSPHATE ANHYDROUS
     Indication: MEDICAL DIET
     Dosage: UNK
  5. METAXALONE. [Concomitant]
     Active Substance: METAXALONE
     Indication: MUSCLE SPASMS
     Dosage: UNK
  6. TYLENOL [Concomitant]
     Active Substance: ACETAMINOPHEN
     Indication: PAIN IN EXTREMITY
     Dosage: UNK
  7. CICLOPIROX. [Suspect]
     Active Substance: CICLOPIROX
     Indication: POLYARTHRITIS
  8. CICLOPIROX. [Suspect]
     Active Substance: CICLOPIROX
     Indication: RASH
     Dosage: UNK UNK, OD
     Route: 061
     Dates: start: 201411

REACTIONS (4)
  - Product use issue [Unknown]
  - Incorrect route of drug administration [Unknown]
  - Oral discomfort [Recovered/Resolved]
  - Wrong patient received medication [Unknown]

NARRATIVE: CASE EVENT DATE: 201411
